FAERS Safety Report 9998109 (Version 1)
Quarter: 2014Q1

REPORT INFORMATION
  Report Type: Spontaneous
  Country: PT (occurrence: PT)
  Receive Date: 20140311
  Receipt Date: 20140311
  Transmission Date: 20141002
  Serious: Yes (Life-Threatening, Hospitalization, Other)
  Sender: FDA-Public Use
  Company Number: PT-JHP PHARMACEUTICALS, LLC-JHP201400091

PATIENT
  Age: 37 Year
  Sex: Female

DRUGS (3)
  1. PITOCIN [Suspect]
     Dosage: 10 IU, UNK
     Route: 042
  2. MISOPROSTOL [Suspect]
     Dosage: 600 ?G, UNK
     Route: 060
  3. PROPOFOL [Concomitant]
     Indication: SEDATIVE THERAPY
     Route: 008

REACTIONS (5)
  - Acute pulmonary oedema [Recovered/Resolved]
  - Respiratory failure [Recovered/Resolved]
  - Hyperthermia [Recovered/Resolved]
  - Haemoglobin decreased [Recovered/Resolved]
  - Supraventricular tachycardia [Recovered/Resolved]
